FAERS Safety Report 7545599-1 (Version None)
Quarter: 2011Q2

REPORT INFORMATION
  Report Type: 
  Country: None (occurrence: None)
  Receive Date: 20110614
  Receipt Date: 20110606
  Transmission Date: 20111010
  Serious: Yes (Hospitalization)
  Sender: FDA-Public Use
  Company Number: US-ASTELLAS-2011US002458

PATIENT
  Sex: Female

DRUGS (1)
  1. ERLOTINIB HYDROCHLORIDE [Suspect]
     Indication: LUNG CARCINOMA CELL TYPE UNSPECIFIED STAGE 0
     Dosage: 150 MG, UID/QD
     Route: 048
     Dates: start: 20110413

REACTIONS (11)
  - PALPITATIONS [None]
  - DECREASED APPETITE [None]
  - DIARRHOEA [None]
  - APHAGIA [None]
  - POLYCYTHAEMIA [None]
  - VOMITING [None]
  - FATIGUE [None]
  - GASTROINTESTINAL HAEMORRHAGE [None]
  - LUNG INFECTION [None]
  - DEHYDRATION [None]
  - ASTHENIA [None]
